FAERS Safety Report 14280066 (Version 4)
Quarter: 2018Q3

REPORT INFORMATION
  Report Type: Spontaneous
  Country: US (occurrence: US)
  Receive Date: 20171212
  Receipt Date: 20180719
  Transmission Date: 20181010
  Serious: Yes (Hospitalization)
  Sender: FDA-Public Use
  Company Number: US-ACTELION-A-US2017-164133

PATIENT
  Age: 6 Month
  Sex: Female

DRUGS (8)
  1. MIDAZOLAM [Concomitant]
     Active Substance: MIDAZOLAM HYDROCHLORIDE
  2. LASIX [Concomitant]
     Active Substance: FUROSEMIDE
  3. ELECTROLYTES NOS [Concomitant]
     Active Substance: ELECTROLYTES NOS
  4. DIURIL [Concomitant]
     Active Substance: CHLOROTHIAZIDE
  5. TRACLEER [Suspect]
     Active Substance: BOSENTAN
     Indication: PULMONARY ARTERIAL HYPERTENSION
     Dosage: 6 MG, BID
     Route: 048
     Dates: start: 20171011
  6. SILDENAFIL. [Concomitant]
     Active Substance: SILDENAFIL
  7. TRACLEER [Suspect]
     Active Substance: BOSENTAN
     Dosage: 16.9 MG, BID
     Route: 048
  8. MULTIVITAMIN [Concomitant]
     Active Substance: VITAMINS

REACTIONS (3)
  - No adverse event [Unknown]
  - Hospitalisation [Unknown]
  - Drug administered to patient of inappropriate age [Unknown]

NARRATIVE: CASE EVENT DATE: 20171011
